FAERS Safety Report 15078467 (Version 1)
Quarter: 2018Q2

REPORT INFORMATION
  Report Type: Spontaneous
  Country: JP (occurrence: JP)
  Receive Date: 20180627
  Receipt Date: 20180627
  Transmission Date: 20180711
  Serious: Yes (Other)
  Sender: FDA-Public Use
  Company Number: JP-MYLANLABS-2018M1046348

PATIENT
  Age: 71 Year
  Sex: Male

DRUGS (1)
  1. EPINEPHRINE. [Suspect]
     Active Substance: EPINEPHRINE
     Indication: ANAPHYLACTIC REACTION
     Route: 065

REACTIONS (6)
  - Angiopathy [Unknown]
  - Left ventricle outflow tract obstruction [Unknown]
  - Condition aggravated [Unknown]
  - Systolic anterior motion of mitral valve [Unknown]
  - Haemodynamic instability [Unknown]
  - Mitral valve incompetence [Unknown]
